FAERS Safety Report 9325492 (Version 4)
Quarter: 2013Q2

REPORT INFORMATION
  Report Type: Spontaneous
  Country: US (occurrence: None)
  Receive Date: 20130528
  Receipt Date: 20130626
  Transmission Date: 20140414
  Serious: Yes (Hospitalization)
  Sender: FDA-Public Use
  Company Number: CABO-13002660

PATIENT
  Age: 84 Year
  Sex: Male
  Weight: 70.3 kg

DRUGS (1)
  1. COMETRIQ [Suspect]
     Indication: PROSTATE CANCER
     Route: 048
     Dates: start: 20130501, end: 20130508

REACTIONS (9)
  - Loss of consciousness [None]
  - Exostosis [None]
  - Chest discomfort [None]
  - Fatigue [None]
  - Asthenia [None]
  - Decreased appetite [None]
  - Wheelchair user [None]
  - Exposed bone in jaw [None]
  - Gait disturbance [None]
